FAERS Safety Report 5528197-0 (Version None)
Quarter: 2007Q4

REPORT INFORMATION
  Report Type: 
  Country: None (occurrence: None)
  Receive Date: 20071128
  Receipt Date: 20071116
  Transmission Date: 20080405
  Serious: Yes (Other)
  Sender: FDA-Public Use
  Company Number: US-PFIZER INC-2007068456

PATIENT
  Sex: Male
  Weight: 74.4 kg

DRUGS (1)
  1. CHANTIX [Suspect]
     Indication: EX-SMOKER

REACTIONS (10)
  - BIPOLAR DISORDER [None]
  - EXERCISE ADEQUATE [None]
  - INSOMNIA [None]
  - LOGORRHOEA [None]
  - MANIA [None]
  - PHARYNGOLARYNGEAL PAIN [None]
  - PSYCHOTIC DISORDER [None]
  - TENSION [None]
  - VIRAL PHARYNGITIS [None]
  - WEIGHT DECREASED [None]
